FAERS Safety Report 4614986-3 (Version None)
Quarter: 2005Q1

REPORT INFORMATION
  Report Type: 
  Country: None (occurrence: None)
  Receive Date: 20050322
  Receipt Date: 20050315
  Transmission Date: 20050727
  Serious: Yes (Disabling)
  Sender: FDA-Public Use
  Company Number: US-MERCK-0503USA02502

PATIENT
  Age: 65 Year
  Sex: Female

DRUGS (2)
  1. VIOXX [Suspect]
     Indication: ARTHRITIS
     Route: 048
     Dates: start: 20040930
  2. HYDRO-CHLOR [Concomitant]
     Route: 065

REACTIONS (1)
  - DIARRHOEA [None]
